FAERS Safety Report 18647781 (Version 1)
Quarter: 2020Q4

REPORT INFORMATION
  Report Type: Spontaneous
  Country: US (occurrence: US)
  Receive Date: 20201222
  Receipt Date: 20201222
  Transmission Date: 20210114
  Serious: Yes (Other)
  Sender: FDA-Public Use
  Company Number: US-BIOVITRUM-2020US7758

PATIENT
  Age: 6 Year
  Sex: Male

DRUGS (1)
  1. ANAKINRA [Suspect]
     Active Substance: ANAKINRA
     Indication: FEBRILE INFECTION-RELATED EPILEPSY SYNDROME

REACTIONS (2)
  - Off label use [Unknown]
  - Cytopenia [Recovered/Resolved]
